FAERS Safety Report 8380290-3 (Version None)
Quarter: 2012Q2

REPORT INFORMATION
  Report Type: 
  Country: None (occurrence: None)
  Receive Date: 20120523
  Receipt Date: 20120509
  Transmission Date: 20120825
  Serious: Yes (Death, Hospitalization)
  Sender: FDA-Public Use
  Company Number: CH-BAYER-2012-045477

PATIENT
  Age: 82 Year
  Sex: Male
  Weight: 80 kg

DRUGS (20)
  1. ATACAND HCT [Suspect]
     Dosage: UNK
     Dates: end: 20111230
  2. FLUTICASONE PROPIONATE/SALMETEROL [Concomitant]
     Dosage: UNK
     Dates: end: 20120105
  3. MINOCIN [Suspect]
     Indication: DEVICE RELATED INFECTION
     Dosage: 50 MG, QID
     Dates: start: 20111201, end: 20111229
  4. ASPIRIN [Suspect]
     Dosage: 100 MG, QD
     Dates: end: 20120105
  5. DUTAS-T [Concomitant]
     Dosage: UNK
     Dates: end: 20120105
  6. NEBIVOLOL HCL [Concomitant]
     Dosage: 5 MG, QD
     Dates: end: 20120105
  7. ARTEOPTIC [Concomitant]
     Dosage: UNK
     Dates: end: 20120105
  8. RIMACTANE [Suspect]
     Indication: DEVICE RELATED INFECTION
     Dosage: 450 MG, BID
     Dates: start: 20111201, end: 20111227
  9. HALCION [Concomitant]
     Dosage: 0.125 MG, QD
     Dates: end: 20111229
  10. NEURONTIN [Concomitant]
     Dosage: 300 MG, QD
     Dates: end: 20111229
  11. XARELTO [Suspect]
     Dosage: 10 MG, QD
     Dates: start: 20110101, end: 20120103
  12. RIMACTANE [Suspect]
     Dosage: 450 MG
     Dates: start: 20120102, end: 20120103
  13. MINOCIN [Suspect]
     Dosage: 50 MG, QID
     Dates: start: 20111231, end: 20120105
  14. PANTOPRAZOLE [Suspect]
     Dosage: 40 MG, QD
     Dates: end: 20120105
  15. TORSEMIDE [Suspect]
     Dosage: 5 MG, QD
     Dates: end: 20111201
  16. ALPHA-ADRENORECEPTOR ANTAGONISTS [Concomitant]
     Dosage: UNK
     Dates: end: 20120105
  17. MAGNESIOCARD [Concomitant]
     Dosage: 5 MMOL, QD
     Dates: end: 20120103
  18. METAMUCIL-2 [Concomitant]
  19. PLAVIX [Suspect]
     Dosage: 75 MG, QD
     Dates: end: 20111201
  20. DIPYRONE TAB [Concomitant]
     Dosage: 20 GTT, PRN
     Dates: end: 20120105

REACTIONS (9)
  - LIVER INJURY [None]
  - JAUNDICE [None]
  - GAMMA-GLUTAMYLTRANSFERASE INCREASED [None]
  - ASPARTATE AMINOTRANSFERASE INCREASED [None]
  - VOMITING [None]
  - ALANINE AMINOTRANSFERASE INCREASED [None]
  - BLOOD ALKALINE PHOSPHATASE INCREASED [None]
  - HYPERBILIRUBINAEMIA [None]
  - DIARRHOEA [None]
